FAERS Safety Report 6506553-1 (Version None)
Quarter: 2009Q4

REPORT INFORMATION
  Report Type: 
  Country: None (occurrence: None)
  Receive Date: 20091221
  Receipt Date: 20091207
  Transmission Date: 20100525
  Serious: Yes (Hospitalization)
  Sender: FDA-Public Use
  Company Number: US-JNJFOC-20091204699

PATIENT
  Sex: Female
  Weight: 63.5 kg

DRUGS (4)
  1. ACETAMINOPHEN [Suspect]
  2. ACETAMINOPHEN [Suspect]
     Indication: PAIN
  3. LORTAB [Suspect]
     Indication: PAIN
  4. PREDNISONE [Concomitant]

REACTIONS (2)
  - DRUG TOXICITY [None]
  - LIVER FUNCTION TEST ABNORMAL [None]
